FAERS Safety Report 10374952 (Version 3)
Quarter: 2014Q4

REPORT INFORMATION
  Report Type: Report from Study
  Country: US (occurrence: US)
  Receive Date: 20140811
  Receipt Date: 20141225
  Transmission Date: 20150528
  Serious: Yes (Other)
  Sender: FDA-Public Use
  Company Number: US-ROCHE-1442866

PATIENT

DRUGS (6)
  1. DOXORUBICIN [Suspect]
     Active Substance: DOXORUBICIN
     Indication: B-CELL LYMPHOMA
     Route: 042
  2. VINCRISTINE [Suspect]
     Active Substance: VINCRISTINE
     Indication: B-CELL LYMPHOMA
     Dosage: MAX TOTAL OF 2 MG ON DAY 1
     Route: 042
  3. PREDNISONE. [Suspect]
     Active Substance: PREDNISONE
     Indication: B-CELL LYMPHOMA
     Dosage: ON DAYS 1-5 OF VERY 21 DAY CYCLE
     Route: 048
  4. IBRUTINIB [Suspect]
     Active Substance: IBRUTINIB
     Indication: B-CELL LYMPHOMA
     Dosage: 280, 420, AND 560 MG
     Route: 065
  5. RITUXIMAB [Suspect]
     Active Substance: RITUXIMAB
     Indication: B-CELL LYMPHOMA
     Route: 042
  6. CYCLOPHOSPHAMIDE. [Suspect]
     Active Substance: CYCLOPHOSPHAMIDE
     Indication: B-CELL LYMPHOMA
     Route: 042

REACTIONS (26)
  - Hypotension [Unknown]
  - Cellulitis [Unknown]
  - Bone pain [Unknown]
  - Diarrhoea [Unknown]
  - Pyrexia [Unknown]
  - Escherichia urinary tract infection [Unknown]
  - Back pain [Unknown]
  - Neutropenia [Unknown]
  - Hyperglycaemia [Unknown]
  - Neuropathy peripheral [Unknown]
  - Thrombocytopenia [Unknown]
  - Nausea [Unknown]
  - Hypophosphataemia [Unknown]
  - Herpes zoster [Unknown]
  - Dizziness [Unknown]
  - Anaemia [Unknown]
  - Periorbital cellulitis [Unknown]
  - Parainfluenzae virus infection [Unknown]
  - Vomiting [Unknown]
  - Febrile neutropenia [Unknown]
  - Testicular oedema [Unknown]
  - Leukocytosis [Unknown]
  - Acute coronary syndrome [Unknown]
  - Syncope [Unknown]
  - Urinary tract infection [Unknown]
  - Hypertensive crisis [Unknown]
